FAERS Safety Report 4450487-3 (Version None)
Quarter: 2004Q3

REPORT INFORMATION
  Report Type: 
  Country: None (occurrence: None)
  Receive Date: 20040914
  Receipt Date: 20040831
  Transmission Date: 20050211
  Serious: Yes (Disabling)
  Sender: FDA-Public Use
  Company Number: 002#4#2003-00279

PATIENT
  Sex: Male

DRUGS (3)
  1. PPA/CPM-75/8MG(OTC) (PHENYLPROPANOLAMINE HCL, CHLORPHENIRAMINE MALEATE [Suspect]
     Indication: NASOPHARYNGITIS
     Dosage: ORAL
     Route: 048
  2. ALKA-SELTZER PLUS COLD MEDICINE [Suspect]
     Indication: NASOPHARYNGITIS
     Dosage: ORAL MUCOSAL
     Route: 048
  3. COMTREX MULTI SYMPTOM COLD RELIEVER [Suspect]
     Indication: NASOPHARYNGITIS
     Dosage: ORAL
     Route: 048

REACTIONS (1)
  - HAEMORRHAGIC STROKE [None]
